FAERS Safety Report 24069194 (Version 1)
Quarter: 2024Q3

REPORT INFORMATION
  Report Type: Spontaneous
  Country: US (occurrence: US)
  Receive Date: 20240710
  Receipt Date: 20240710
  Transmission Date: 20241016
  Serious: No
  Sender: ROCHE
  Company Number: US-ROCHE-3448434

PATIENT
  Sex: Male

DRUGS (1)
  1. ALECENSA [Suspect]
     Active Substance: ALECTINIB HYDROCHLORIDE
     Indication: Non-small cell lung cancer
     Route: 065

REACTIONS (6)
  - Bradycardia [Unknown]
  - Renal impairment [Unknown]
  - Muscle atrophy [Unknown]
  - Peripheral swelling [Unknown]
  - Pancreatic atrophy [Unknown]
  - Blood creatine phosphokinase increased [Unknown]
